FAERS Safety Report 7428473-0 (Version None)
Quarter: 2011Q2

REPORT INFORMATION
  Report Type: 
  Country: None (occurrence: None)
  Receive Date: 20110413
  Receipt Date: 20110411
  Transmission Date: 20111010
  Serious: Yes (Death)
  Sender: FDA-Public Use
  Company Number: TPA2011A00748

PATIENT
  Age: 62 Year
  Sex: Female

DRUGS (1)
  1. ACTOPLUS MET [Suspect]
     Indication: DIABETES MELLITUS
     Dosage: 15/850 MG, 2 IN 1 D, PER ORAL
     Route: 048

REACTIONS (1)
  - DEATH [None]
